FAERS Safety Report 6284442-8 (Version None)
Quarter: 2009Q3

REPORT INFORMATION
  Report Type: 
  Country: None (occurrence: None)
  Receive Date: 20090727
  Receipt Date: 20090721
  Transmission Date: 20100115
  Serious: Yes (Other)
  Sender: FDA-Public Use
  Company Number: IN-ROCHE-645647

PATIENT
  Age: 6 Year
  Sex: Female

DRUGS (1)
  1. NAPROXEN [Suspect]
     Indication: DRUG USE FOR UNKNOWN INDICATION
     Dosage: EVERY 12 HOURS
     Route: 065

REACTIONS (1)
  - VITAMIN C DEFICIENCY [None]
